FAERS Safety Report 17439083 (Version 3)
Quarter: 2020Q1

REPORT INFORMATION
  Report Type: Spontaneous
  Country: US (occurrence: US)
  Receive Date: 20200220
  Receipt Date: 20200320
  Transmission Date: 20200409
  Serious: Yes (Other)
  Sender: FDA-Public Use
  Company Number: US-UNITED THERAPEUTICS-UNT-2020-002688

PATIENT
  Age: 64 Year
  Sex: Female
  Weight: 66.67 kg

DRUGS (3)
  1. AMBRISENTAN [Concomitant]
     Active Substance: AMBRISENTAN
     Indication: PRODUCT USED FOR UNKNOWN INDICATION
     Dosage: UNK
     Route: 065
  2. REMODULIN [Suspect]
     Active Substance: TREPROSTINIL
     Indication: PULMONARY ARTERIAL HYPERTENSION
     Dosage: 0.0175 ?G/KG, CONTINUING
     Route: 058
     Dates: start: 20180206
  3. REVATIO [Concomitant]
     Active Substance: SILDENAFIL CITRATE
     Indication: PRODUCT USED FOR UNKNOWN INDICATION
     Dosage: UNK
     Route: 065

REACTIONS (6)
  - Feeling abnormal [Recovering/Resolving]
  - Dyspnoea [Unknown]
  - Mobility decreased [Unknown]
  - Oxygen saturation decreased [Unknown]
  - Device dislocation [Unknown]
  - Asthenia [Unknown]

NARRATIVE: CASE EVENT DATE: 202001
